FAERS Safety Report 10203754 (Version 2)
Quarter: 2014Q2

REPORT INFORMATION
  Report Type: Report from Study
  Country: BR (occurrence: BR)
  Receive Date: 20140529
  Receipt Date: 20140624
  Transmission Date: 20141212
  Serious: Yes (Other)
  Sender: FDA-Public Use
  Company Number: PHHY2014BR063351

PATIENT
  Sex: Male
  Weight: 95 kg

DRUGS (5)
  1. SANDOSTATIN LAR [Suspect]
     Indication: ACROMEGALY
     Dosage: 10 MG, MONTHLY
     Route: 030
  2. SANDOSTATIN LAR [Suspect]
     Dosage: 10 MG, EVERY 40 DAYS
  3. PURAN T4 [Concomitant]
     Dosage: 1 DF, DAILY
     Route: 048
  4. METICORTEN [Concomitant]
     Indication: HORMONE LEVEL ABNORMAL
     Dosage: 1.5 DF, DAILY
     Route: 048
  5. DURATESTON [Concomitant]
     Indication: HORMONE REPLACEMENT THERAPY
     Dosage: 1 DF, DAILY
     Route: 065

REACTIONS (5)
  - Hepatitis C [Not Recovered/Not Resolved]
  - Cholelithiasis [Recovered/Resolved]
  - Panic reaction [Recovered/Resolved]
  - Weight decreased [Recovered/Resolved]
  - Decreased appetite [Recovered/Resolved]
